FAERS Safety Report 16980974 (Version 1)
Quarter: 2019Q4

REPORT INFORMATION
  Report Type: Other
  Country: US (occurrence: US)
  Receive Date: 20191031
  Receipt Date: 20191031
  Transmission Date: 20200122
  Serious: No
  Sender: FDA-Public Use
  Company Number: US-UPSHER-SMITH LABORATORIES, LLC-2019USL00024

PATIENT
  Sex: Male

DRUGS (1)
  1. JANTOVEN [Suspect]
     Active Substance: WARFARIN SODIUM
     Dosage: 4 MG, 1X/DAY
     Route: 048
     Dates: start: 2018

REACTIONS (1)
  - International normalised ratio fluctuation [Unknown]

NARRATIVE: CASE EVENT DATE: 2018
